FAERS Safety Report 5130231-7 (Version None)
Quarter: 2006Q4

REPORT INFORMATION
  Report Type: 
  Country: None (occurrence: None)
  Receive Date: 20061019
  Receipt Date: 20061004
  Transmission Date: 20070319
  Serious: Yes (Other)
  Sender: FDA-Public Use
  Company Number: US-JNJFOC-20061001346

PATIENT
  Sex: Female

DRUGS (3)
  1. ORTHO MICRONOR [Suspect]
     Indication: DRUG USE FOR UNKNOWN INDICATION
     Dates: start: 20060301
  2. ALLEGRA [Concomitant]
  3. NASONEX [Concomitant]

REACTIONS (1)
  - BRAIN SCAN ABNORMAL [None]
